FAERS Safety Report 7046003-2 (Version None)
Quarter: 2010Q4

REPORT INFORMATION
  Report Type: 
  Country: None (occurrence: None)
  Receive Date: 20101014
  Receipt Date: 20101011
  Transmission Date: 20110411
  Serious: Yes (Hospitalization)
  Sender: FDA-Public Use
  Company Number: US-PFIZER INC-2010126722

PATIENT
  Sex: Female
  Weight: 60.33 kg

DRUGS (8)
  1. *NO SUBJECT DRUG [Suspect]
     Indication: BREAST CANCER
     Dosage: NO DOSE GIVEN
  2. NORVASC [Suspect]
     Dosage: 10 MG, 1X/DAY
  3. LISINOPRIL [Suspect]
     Dosage: 40 MG, 1X/DAY
  4. HYDROCHLOROTHIAZIDE [Suspect]
     Dosage: 25 MG, 1X/DAY
  5. ARIMIDEX [Suspect]
     Indication: BREAST CANCER
     Dosage: 1 MG, 1X/DAY
     Dates: start: 20051213, end: 20100804
  6. SPIRIVA [Suspect]
     Dosage: ONE PUFF DAILY
  7. EFFEXOR XR [Suspect]
     Dosage: 150 MG, 1X/DAY
  8. FORTEO [Suspect]
     Dosage: 20 UG, 1X/DAY
     Route: 058

REACTIONS (5)
  - BUNDLE BRANCH BLOCK LEFT [None]
  - CARDIAC FAILURE CONGESTIVE [None]
  - MYOCARDIAL ISCHAEMIA [None]
  - RESTRICTIVE CARDIOMYOPATHY [None]
  - TROPONIN INCREASED [None]
